FAERS Safety Report 6735534-8 (Version None)
Quarter: 2010Q2

REPORT INFORMATION
  Report Type: 
  Country: None (occurrence: None)
  Receive Date: 20100521
  Receipt Date: 20100510
  Transmission Date: 20101027
  Serious: Yes (Hospitalization)
  Sender: FDA-Public Use
  Company Number: JP-ELI_LILLY_AND_COMPANY-JP201004008248

PATIENT
  Age: 73 Year
  Sex: Female

DRUGS (18)
  1. PEMETREXED [Suspect]
     Indication: NON-SMALL CELL LUNG CANCER
     Dosage: 500 MG/M2, OTHER
     Route: 042
     Dates: start: 20100303, end: 20100303
  2. PEMETREXED [Suspect]
     Dosage: 400 MG/M2, OTHER
     Route: 042
     Dates: start: 20100402
  3. PARAPLATIN [Concomitant]
     Indication: NON-SMALL CELL LUNG CANCER
     Dosage: AUC6
     Route: 042
     Dates: start: 20100303, end: 20100303
  4. PARAPLATIN [Concomitant]
     Dosage: AUC5
     Route: 042
     Dates: start: 20100402
  5. PANVITAN [Concomitant]
     Dosage: 1 G, DAILY (1/D)
     Route: 048
     Dates: start: 20100224
  6. CYANOCOBALAMIN [Concomitant]
     Dosage: 1 MG, UNK
     Route: 030
     Dates: start: 20100224
  7. CODEINE SULFATE [Concomitant]
     Indication: COUGH
     Dosage: 20 MG, AS NEEDED
     Route: 048
     Dates: start: 20100402
  8. FLUVASTATIN [Concomitant]
     Indication: HYPERLIPIDAEMIA
     Dosage: 20 MG, DAILY (1/D)
     Route: 048
  9. OPAPROSMON [Concomitant]
     Indication: SPINAL COLUMN STENOSIS
     Dosage: 15 UG, DAILY (1/D)
     Route: 048
  10. COCARL [Concomitant]
     Indication: PAIN
     Dosage: 1200 MG, DAILY (1/D)
     Route: 048
     Dates: start: 20100224
  11. LIPITOR [Concomitant]
     Indication: HYPERLIPIDAEMIA
     Dosage: 10 MG, DAILY (1/D)
     Route: 048
     Dates: start: 20100302
  12. KYTRIL [Concomitant]
     Indication: PROPHYLAXIS OF NAUSEA AND VOMITING
     Dosage: 3 MG, OTHER
     Route: 042
     Dates: start: 20100303, end: 20100426
  13. DEXART [Concomitant]
     Indication: PROPHYLAXIS OF NAUSEA AND VOMITING
     Dosage: 6.6 MG, OTHER
     Route: 042
     Dates: start: 20100303, end: 20100426
  14. NIZORAL [Concomitant]
     Indication: TINEA PEDIS
     Route: 061
     Dates: start: 20100305
  15. WHITE PETROLATUM [Concomitant]
     Indication: ERYTHEMA
     Route: 061
     Dates: start: 20100305
  16. MAGLAX /JPN/ [Concomitant]
     Indication: CONSTIPATION PROPHYLAXIS
     Dosage: 1500 MG, DAILY (1/D)
     Route: 048
     Dates: start: 20100308
  17. LOXOPROFEN [Concomitant]
     Indication: PAIN
     Dosage: 60 MG, AS NEEDED
     Route: 048
     Dates: start: 20100323
  18. CYTOTEC [Concomitant]
     Dosage: 200 MG, DAILY (1/D)
     Route: 048
     Dates: start: 20100323

REACTIONS (2)
  - COUGH [None]
  - PLEURAL EFFUSION [None]
